FAERS Safety Report 14129053 (Version 4)
Quarter: 2017Q4

REPORT INFORMATION
  Report Type: Spontaneous
  Country: CH (occurrence: CH)
  Receive Date: 20171026
  Receipt Date: 20171121
  Transmission Date: 20180321
  Serious: Yes (Hospitalization)
  Sender: FDA-Public Use
  Company Number: CH-PFIZER INC-2017459764

PATIENT
  Age: 81 Year
  Sex: Male
  Weight: 90 kg

DRUGS (13)
  1. IMUREK /00001501/ [Suspect]
     Active Substance: AZATHIOPRINE
     Dosage: 25 MG, 3X/DAY MG, (2-0-1-0)
     Route: 048
     Dates: start: 201701, end: 20170319
  2. MONOVO [Concomitant]
     Dosage: SEVERAL TIMES DAILY
  3. ASPIRIN CARDIO [Concomitant]
     Active Substance: ASPIRIN
     Dosage: 100 MG, 1X/DAY (1-0-0-0)
     Route: 048
  4. PANTOZOL [Concomitant]
     Active Substance: PANTOPRAZOLE SODIUM
     Dosage: 40 MG, 1X/DAY (1-0-0-0)
     Route: 048
  5. TAZOBAC [Suspect]
     Active Substance: PIPERACILLIN SODIUM\TAZOBACTAM SODIUM
     Dosage: 1 DF, 1X/DAY
     Route: 042
     Dates: start: 20170320, end: 20170323
  6. LEVEMIR [Concomitant]
     Active Substance: INSULIN DETEMIR
     Indication: TYPE 2 DIABETES MELLITUS
     Dosage: 28 IU, 1X/DAY (28IU-0-0-0)
     Route: 058
  7. IMUREK /00001501/ [Suspect]
     Active Substance: AZATHIOPRINE
     Dosage: 100 MG, DAILY
     Dates: start: 201701, end: 201701
  8. IMUREK /00001501/ [Suspect]
     Active Substance: AZATHIOPRINE
     Indication: PEMPHIGUS
     Dosage: 25-75MG/DAY
     Dates: start: 201409, end: 201701
  9. LISINOPRIL HCT /01613901/ [Suspect]
     Active Substance: HYDROCHLOROTHIAZIDE\LISINOPRIL
     Indication: HYPERTONIA
     Dosage: 1 DF, 1X/DAY, [HYDROCHLOROTHIAZIDE 12.5 MG]/[ LISINOPRIL DEHYDRATE 20 MG]
     Route: 048
     Dates: end: 20170318
  10. CONCOR [Concomitant]
     Active Substance: BISOPROLOL FUMARATE
     Indication: HYPERTONIA
     Dosage: 5 MG, 1X/DAY (1-0-0-0)
     Route: 048
  11. JANUMET [Suspect]
     Active Substance: METFORMIN HYDROCHLORIDE\SITAGLIPTIN PHOSPHATE
     Indication: TYPE 2 DIABETES MELLITUS
     Dosage: 1 DF, 1X/DAY, [METFORMIN 1000 MG]/[SITAGLIPTIN 50 MG] (0-0-1-0)
     Route: 048
  12. ELTROXIN LF [Concomitant]
     Indication: HYPOTHYROIDISM
     Dosage: 0.05 MG, 1X/DAY (1-0-0-0)
     Route: 048
  13. POLIDOCANOL [Concomitant]
     Active Substance: POLIDOCANOL
     Dosage: 50MG/G, AS NEEDED, SEVERAL TIMES A DAY
     Route: 061

REACTIONS (2)
  - Pancytopenia [Recovered/Resolved]
  - Pancreatitis acute [Recovered/Resolved]

NARRATIVE: CASE EVENT DATE: 20170318
